FAERS Safety Report 4863171-9 (Version None)
Quarter: 2005Q4

REPORT INFORMATION
  Report Type: 
  Country: None (occurrence: None)
  Receive Date: 20051201
  Receipt Date: 20050720
  Transmission Date: 20060501
  Serious: No
  Sender: FDA-Public Use
  Company Number: 2005PV000500

PATIENT
  Age: 70 Year
  Sex: Female
  Weight: 79.3795 kg

DRUGS (8)
  1. BYETTA [Suspect]
     Indication: DIABETES MELLITUS NON-INSULIN-DEPENDENT
     Dosage: 5 MCG;TIW;SC, 5 MCG;SC
     Route: 058
     Dates: start: 20050624, end: 20050716
  2. BYETTA [Suspect]
     Indication: DIABETES MELLITUS NON-INSULIN-DEPENDENT
     Dosage: 5 MCG;TIW;SC, 5 MCG;SC
     Route: 058
     Dates: start: 20050719
  3. ACTOS [Concomitant]
  4. GLUCOTROL [Concomitant]
  5. LANTUS [Concomitant]
  6. PRAVACHOL [Concomitant]
  7. ZEBETA [Concomitant]
  8. SYNTHROID [Concomitant]

REACTIONS (4)
  - BLOOD GLUCOSE DECREASED [None]
  - NAUSEA [None]
  - RHINORRHOEA [None]
  - VOMITING [None]
